FAERS Safety Report 9357583 (Version 2)
Quarter: 2013Q3

REPORT INFORMATION
  Report Type: Spontaneous
  Country: DE (occurrence: DE)
  Receive Date: 20130620
  Receipt Date: 20130715
  Transmission Date: 20140515
  Serious: Yes (Hospitalization)
  Sender: FDA-Public Use
  Company Number: DE-NOVOPROD-380678

PATIENT
  Age: 30 Year
  Sex: Female
  Weight: 145 kg

DRUGS (3)
  1. VICTOZA [Suspect]
     Indication: TYPE 2 DIABETES MELLITUS
     Dosage: 2.4 MG
     Route: 058
     Dates: end: 20120307
  2. VELMETIA [Suspect]
     Indication: TYPE 2 DIABETES MELLITUS
     Dosage: 2 DF (50/850 MG)
     Route: 048
     Dates: end: 20120307
  3. PRESINOL [Concomitant]
     Indication: HYPERTENSION
     Dosage: 250 MG
     Route: 048

REACTIONS (2)
  - Imminent abortion [Unknown]
  - Exposure during pregnancy [Unknown]
